FAERS Safety Report 5760189-9 (Version None)
Quarter: 2008Q2

REPORT INFORMATION
  Report Type: 
  Country: None (occurrence: None)
  Receive Date: 20080605
  Receipt Date: 20080528
  Transmission Date: 20081010
  Serious: Yes (Other)
  Sender: FDA-Public Use
  Company Number: AR-AMGEN-US284396

PATIENT
  Age: 54 Year
  Sex: Male

DRUGS (3)
  1. ENBREL [Suspect]
     Indication: RHEUMATOID ARTHRITIS
     Dosage: 50 MG
     Route: 058
     Dates: end: 20080401
  2. NAPROXEN [Concomitant]
     Route: 048
  3. METHOTREXATE [Concomitant]
     Route: 065

REACTIONS (3)
  - BLINDNESS [None]
  - KERATITIS [None]
  - VIRAL INFECTION [None]
